FAERS Safety Report 9058673 (Version 1)
Quarter: 2013Q1

REPORT INFORMATION
  Report Type: Spontaneous
  Country: US (occurrence: US)
  Receive Date: 20130204
  Receipt Date: 20130204
  Transmission Date: 20140127
  Serious: No
  Sender: FDA-Public Use
  Company Number: US-B.I. PHARMACEUTICALS,INC./RIDGEFIELD-2013-BI-02448BP

PATIENT
  Sex: Female
  Weight: 73 kg

DRUGS (4)
  1. PRADAXA [Suspect]
     Indication: ATRIAL FIBRILLATION
     Dosage: 300 MG
     Route: 048
     Dates: start: 2011
  2. JANUMET [Concomitant]
     Indication: DIABETES MELLITUS
     Route: 048
  3. PRAVASTATIN [Concomitant]
     Route: 048
  4. AMIODERONE [Concomitant]
     Route: 048

REACTIONS (1)
  - Balance disorder [Not Recovered/Not Resolved]
